FAERS Safety Report 8884493 (Version 1)
Quarter: 2012Q4

REPORT INFORMATION
  Report Type: 
  Country: US (occurrence: US)
  Receive Date: 20121102
  Receipt Date: 20121102
  Transmission Date: 20130627
  Serious: No
  Sender: FDA-Public Use
  Company Number: US-ASTRAZENECA-2012SE17988

PATIENT
  Age: 68 Year
  Sex: Female
  Weight: 80.3 kg

DRUGS (1)
  1. CRESTOR [Suspect]
     Indication: BLOOD CHOLESTEROL ABNORMAL
     Route: 048

REACTIONS (4)
  - Oedema peripheral [Unknown]
  - Oedema peripheral [Unknown]
  - Weight increased [Unknown]
  - Swelling face [Unknown]
